FAERS Safety Report 5075330-3 (Version None)
Quarter: 2006Q3

REPORT INFORMATION
  Report Type: 
  Country: None (occurrence: None)
  Receive Date: 20060804
  Receipt Date: 20060724
  Transmission Date: 20061208
  Serious: Yes (Other)
  Sender: FDA-Public Use
  Company Number: 2006091416

PATIENT
  Sex: Male

DRUGS (6)
  1. LYRICA [Suspect]
     Indication: POLYNEUROPATHY
     Dosage: 8.33 MG (25 MG), ORAL
     Route: 048
  2. NEURONTIN [Suspect]
     Indication: POLYNEUROPATHY
     Dosage: ORAL
     Route: 048
  3. REYATAZ [Concomitant]
  4. TRUVADA [Concomitant]
  5. MORPHINE [Concomitant]
  6. OXYCODONE HCL [Concomitant]

REACTIONS (6)
  - BALANCE DISORDER [None]
  - DRUG INEFFECTIVE [None]
  - MEMORY IMPAIRMENT [None]
  - MUSCLE SPASMS [None]
  - SPEECH DISORDER [None]
  - TREMOR [None]
